FAERS Safety Report 9513270 (Version 2)
Quarter: 2014Q1

REPORT INFORMATION
  Report Type: Spontaneous
  Country: US (occurrence: US)
  Receive Date: 20130910
  Receipt Date: 20140123
  Transmission Date: 20141002
  Serious: No
  Sender: FDA-Public Use
  Company Number: US-009507513-1309USA004154

PATIENT
  Sex: Female

DRUGS (3)
  1. CLARITIN [Suspect]
     Indication: EYE IRRITATION
     Dosage: UNK, UNKNOWN
     Route: 048
     Dates: start: 201307
  2. CLARITIN [Suspect]
     Indication: CRYING
  3. CLARITIN [Suspect]
     Indication: HYPERSENSITIVITY

REACTIONS (4)
  - Dysstasia [Unknown]
  - Pain in extremity [Unknown]
  - Musculoskeletal pain [Unknown]
  - Neck pain [Unknown]
